FAERS Safety Report 7294828-0 (Version None)
Quarter: 2011Q1

REPORT INFORMATION
  Report Type: 
  Country: None (occurrence: None)
  Receive Date: 20110216
  Receipt Date: 20101227
  Transmission Date: 20110831
  Serious: Yes (Hospitalization)
  Sender: FDA-Public Use
  Company Number: US-BAYER-201023419NA

PATIENT
  Sex: Female
  Weight: 105 kg

DRUGS (10)
  1. LABETALOL HCL [Concomitant]
     Indication: HYPERTENSION
  2. IBUPROFEN [Concomitant]
     Dosage: 800 MG (DAILY DOSE), , ORAL
     Route: 048
     Dates: start: 20050303
  3. NASACORT AQ [Concomitant]
     Route: 045
     Dates: start: 20050927
  4. CLINDAMYCIN HYDROCHLORIDE [Concomitant]
     Dosage: 150 MBQ (DAILY DOSE), , ORAL
     Route: 048
     Dates: start: 20050302
  5. LEVAQUIN [Concomitant]
     Dosage: 500 MG (DAILY DOSE), , ORAL
     Route: 048
     Dates: start: 20050504
  6. HYDROCODONE BITARTRATE AND ACETAMINOPHEN [Concomitant]
     Dosage: DOSE REGIMEN: 5/500MG
     Route: 048
     Dates: start: 20050408
  7. ACETAMINOPHEN W/ CODEINE [Concomitant]
     Route: 048
     Dates: start: 20050330
  8. YASMIN [Suspect]
     Indication: CONTRACEPTION
     Route: 048
     Dates: start: 20030904, end: 20050901
  9. FLUOCINONIDE [Concomitant]
     Route: 061
     Dates: start: 20041031
  10. METHYLPREDNISOLONE [Concomitant]
     Dosage: 4 MG (DAILY DOSE), , ORAL
     Route: 048
     Dates: start: 20050302

REACTIONS (3)
  - DEEP VEIN THROMBOSIS [None]
  - OEDEMA PERIPHERAL [None]
  - PAIN IN EXTREMITY [None]
